FAERS Safety Report 17397589 (Version 2)
Quarter: 2020Q1

REPORT INFORMATION
  Report Type: Report from Study
  Country: JP (occurrence: JP)
  Receive Date: 20200210
  Receipt Date: 20200220
  Transmission Date: 20200409
  Serious: Yes (Other)
  Sender: FDA-Public Use
  Company Number: JP-JNJFOC-20200201266

PATIENT
  Age: 30 Year
  Sex: Female
  Weight: 45 kg

DRUGS (24)
  1. STELARA [Suspect]
     Active Substance: USTEKINUMAB
     Indication: CROHN^S DISEASE
     Route: 058
     Dates: start: 20190205, end: 20190205
  2. STELARA [Suspect]
     Active Substance: USTEKINUMAB
     Indication: CROHN^S DISEASE
     Route: 058
     Dates: start: 20200115
  3. ZENTACORT [Concomitant]
     Active Substance: BUDESONIDE
     Route: 048
     Dates: start: 20190423, end: 20190617
  4. PENTASA [Concomitant]
     Active Substance: MESALAMINE
     Indication: CROHN^S DISEASE
     Route: 048
     Dates: start: 20181128
  5. AZANIN [Concomitant]
     Active Substance: AZATHIOPRINE
     Indication: CROHN^S DISEASE
     Route: 048
     Dates: start: 20181207, end: 20190205
  6. ZINC. [Concomitant]
     Active Substance: ZINC
     Indication: CROHN^S DISEASE
     Route: 048
     Dates: start: 20181201
  7. NAUZELIN [Concomitant]
     Active Substance: DOMPERIDONE
     Dosage: UNKNOWN
     Route: 048
  8. MIYA-BM [Concomitant]
     Active Substance: CLOSTRIDIUM BUTYRICUM SPORES STRAIN M-55
     Indication: CROHN^S DISEASE
     Route: 048
     Dates: start: 20181029
  9. STELARA [Suspect]
     Active Substance: USTEKINUMAB
     Indication: CROHN^S DISEASE
     Route: 058
     Dates: start: 20190528, end: 20190528
  10. STELARA [Suspect]
     Active Substance: USTEKINUMAB
     Indication: CROHN^S DISEASE
     Route: 058
     Dates: start: 20190724, end: 20190724
  11. ZENTACORT [Concomitant]
     Active Substance: BUDESONIDE
     Indication: CROHN^S DISEASE
     Route: 048
     Dates: start: 20181207, end: 20190306
  12. AZANIN [Concomitant]
     Active Substance: AZATHIOPRINE
     Indication: CROHN^S DISEASE
     Route: 048
     Dates: start: 20190206, end: 20190527
  13. AZANIN [Concomitant]
     Active Substance: AZATHIOPRINE
     Indication: CROHN^S DISEASE
     Route: 048
     Dates: start: 20190528
  14. NEXIUM [Concomitant]
     Active Substance: ESOMEPRAZOLE MAGNESIUM
     Indication: CROHN^S DISEASE
     Route: 048
     Dates: start: 20181205
  15. SP                                 /00148702/ [Concomitant]
     Dosage: UNKNOWN
  16. ZENTACORT [Concomitant]
     Active Substance: BUDESONIDE
     Route: 048
     Dates: start: 20190618, end: 20190624
  17. ZENTACORT [Concomitant]
     Active Substance: BUDESONIDE
     Route: 048
     Dates: start: 20190625, end: 20190708
  18. LEBENIN [Concomitant]
     Active Substance: LACTOBACILLUS ACIDOPHILUS\STREPTOCOCCUS FAECAIS
     Dosage: UNKNOWN
     Route: 048
  19. STELARA [Suspect]
     Active Substance: USTEKINUMAB
     Indication: CROHN^S DISEASE
     Route: 042
     Dates: start: 20181207, end: 20181207
  20. STELARA [Suspect]
     Active Substance: USTEKINUMAB
     Indication: CROHN^S DISEASE
     Route: 058
     Dates: start: 20190918, end: 20190918
  21. STELARA [Suspect]
     Active Substance: USTEKINUMAB
     Indication: CROHN^S DISEASE
     Route: 058
     Dates: start: 20191113, end: 20191113
  22. STELARA [Suspect]
     Active Substance: USTEKINUMAB
     Indication: CROHN^S DISEASE
     Route: 058
     Dates: start: 20190402, end: 20190402
  23. PA [Concomitant]
     Active Substance: ACETAMINOPHEN\CAFFEINE\PROMETHAZINE\SALICYLAMIDE
     Dosage: UNKNOWN
     Route: 048
  24. ZESULAN [Concomitant]
     Active Substance: MEQUITAZINE
     Dosage: UNKNOWN
     Route: 048

REACTIONS (2)
  - Enterocolitis [Recovering/Resolving]
  - Nasopharyngitis [Recovering/Resolving]

NARRATIVE: CASE EVENT DATE: 20190316
